FAERS Safety Report 4843856-0 (Version None)
Quarter: 2005Q4

REPORT INFORMATION
  Report Type: 
  Country: None (occurrence: None)
  Receive Date: 20051130
  Receipt Date: 20051130
  Transmission Date: 20060501
  Serious: Yes (Life-Threatening, Hospitalization)
  Sender: FDA-Public Use
  Company Number: None

PATIENT
  Age: 12 Year
  Sex: Male

DRUGS (1)
  1. TAXOL [Suspect]
     Indication: NON-RENAL CELL CARCINOMA OF KIDNEY
     Dosage: INTRAVENOUS; 110.0
     Route: 042
     Dates: start: 20051011, end: 20051011

REACTIONS (1)
  - ANAPHYLACTIC REACTION [None]
